FAERS Safety Report 7389609-3 (Version None)
Quarter: 2011Q2

REPORT INFORMATION
  Report Type: 
  Country: None (occurrence: None)
  Receive Date: 20110401
  Receipt Date: 20110322
  Transmission Date: 20111010
  Serious: Yes (Other)
  Sender: FDA-Public Use
  Company Number: US-CEPHALON-2011000530

PATIENT
  Age: 28 Year
  Sex: Female

DRUGS (3)
  1. NUVIGIL [Suspect]
     Indication: FATIGUE
     Route: 048
     Dates: start: 20110101, end: 20110121
  2. SEROQUEL [Concomitant]
  3. PRISTIQ [Concomitant]

REACTIONS (3)
  - SYNCOPE [None]
  - ANXIETY [None]
  - PRESSURE OF SPEECH [None]
